FAERS Safety Report 20688217 (Version 1)
Quarter: 2022Q2

REPORT INFORMATION
  Report Type: Report from Study
  Country: IT (occurrence: IT)
  Receive Date: 20220408
  Receipt Date: 20220408
  Transmission Date: 20220721
  Serious: Yes (Hospitalization)
  Sender: FDA-Public Use
  Company Number: None

PATIENT
  Age: 38 Year
  Sex: Male

DRUGS (8)
  1. DELORAZEPAM [Suspect]
     Active Substance: DELORAZEPAM
     Dosage: UNIT DOSE: 1.5 MG, FREQUENCY TIME- 1 DAY,
     Route: 048
  2. QUETIAPINE [Suspect]
     Active Substance: QUETIAPINE
     Dosage: 4 DF, FREQUENCY TIME- 1 DAY
     Route: 048
  3. HALOPERIDOL [Suspect]
     Active Substance: HALOPERIDOL
     Dosage: THINK FORM STRENGTH 2 MG / ML, UNIT DOSE- 60 GTT, FREQUENCY TIME 1 DAY
     Route: 048
  4. VALPROIC ACID [Concomitant]
     Active Substance: VALPROIC ACID
     Dosage: SODIUM VALPROATE EG FORM STRENGTH: 500 MG PROLU RELEASE TABLETS, UNIT DOSE: 3 DF
     Route: 048
  5. QUETIAPINE [Concomitant]
     Active Substance: QUETIAPINE
     Dosage: EG FORM STRENGTH:  25 MG, UNIT DOSE: 6 DF
     Route: 048
  6. CALCIFEDIOL [Concomitant]
     Active Substance: CALCIFEDIOL
     Dosage: FORM STRENGTH: 0.15 MG / ML, UNIT DOSE: 20 GTT
     Route: 048
  7. ATARAX [Concomitant]
     Active Substance: HYDROXYZINE HYDROCHLORIDE
     Dosage: FORM STRENGTH: 25 MG,
     Route: 048
  8. AKINETON [Concomitant]
     Active Substance: BIPERIDEN HYDROCHLORIDE
     Dosage: FORM STRENGTH: 4 MG EXTENDED RELEASE TABLETS, UNIT DOSE: 1 DF
     Route: 048

REACTIONS (2)
  - Sopor [Recovering/Resolving]
  - Depressed level of consciousness [Recovering/Resolving]

NARRATIVE: CASE EVENT DATE: 20210909
